FAERS Safety Report 5045005-5 (Version None)
Quarter: 2006Q3

REPORT INFORMATION
  Report Type: 
  Country: None (occurrence: None)
  Receive Date: 20060707
  Receipt Date: 20060116
  Transmission Date: 20061208
  Serious: Yes (Hospitalization, Other)
  Sender: FDA-Public Use
  Company Number: PHNU2006DE00571

PATIENT
  Sex: Female

DRUGS (4)
  1. TRILEPTAL [Suspect]
     Indication: EPILEPSY
     Dosage: 480 ML/D
     Dates: start: 20030101
  2. TRILEPTAL [Suspect]
     Dosage: 4 ML, BID
  3. VALPROATE SODIUM [Suspect]
     Dosage: 300 MG/D
     Dates: start: 20040101, end: 20051201
  4. KEPPRA [Suspect]
     Dosage: 20 MG/KG BODY WEIGHT
     Dates: start: 20051201

REACTIONS (8)
  - CONVULSION [None]
  - HYPONATRAEMIA [None]
  - INFECTION [None]
  - LIVER DISORDER [None]
  - LIVER FUNCTION TEST ABNORMAL [None]
  - MICTURITION DISORDER [None]
  - SOMNOLENCE [None]
  - URINARY RETENTION [None]
